FAERS Safety Report 4430292-4 (Version None)
Quarter: 2004Q3

REPORT INFORMATION
  Report Type: 
  Country: None (occurrence: None)
  Receive Date: 20040817
  Receipt Date: 20040802
  Transmission Date: 20050211
  Serious: Yes (Hospitalization)
  Sender: FDA-Public Use
  Company Number: 2004-FF-00469FF

PATIENT
  Age: 94 Year
  Sex: Female

DRUGS (6)
  1. CLONIDINE [Suspect]
     Dosage: 0.15 MG (0.15 MG)
     Route: 048
     Dates: end: 20040622
  2. ALDACTONE [Concomitant]
  3. SERMION (NICERGOLINE) [Concomitant]
  4. EUPRESSYL (URAPIDIL) [Concomitant]
  5. CELECTOL [Concomitant]
  6. STABLON (TIANEPTINE) [Concomitant]

REACTIONS (5)
  - C-REACTIVE PROTEIN INCREASED [None]
  - CALCIFICATION PANCREATIC DUCT [None]
  - LEUKOCYTOSIS [None]
  - PANCREATITIS ACUTE [None]
  - WHITE BLOOD CELL COUNT INCREASED [None]
